FAERS Safety Report 17355472 (Version 3)
Quarter: 2020Q4

REPORT INFORMATION
  Report Type: Spontaneous
  Country: US (occurrence: US)
  Receive Date: 20200131
  Receipt Date: 20201221
  Transmission Date: 20210113
  Serious: Yes (Other)
  Sender: FDA-Public Use
  Company Number: US-PFIZER INC-2020040404

PATIENT
  Age: 80 Year
  Sex: Female

DRUGS (10)
  1. TAFAMIDIS [Interacting]
     Active Substance: TAFAMIDIS MEGLUMINE
     Dosage: 61 MG, DAILY
  2. VYNDAQEL [Interacting]
     Active Substance: TAFAMIDIS MEGLUMINE
     Dosage: 80 MG, DAILY
  3. ATORVASTATIN CALCIUM. [Interacting]
     Active Substance: ATORVASTATIN CALCIUM
     Dosage: 80 MG, 1X/DAY
  4. APIXABAN [Interacting]
     Active Substance: APIXABAN
     Dosage: 2.5 MG, 2X/DAY (2.5 MG TWICE DAILY)
  5. CYCLOSPORINE. [Concomitant]
     Active Substance: CYCLOSPORINE
     Dosage: UNK
  6. ATORVASTATIN CALCIUM. [Suspect]
     Active Substance: ATORVASTATIN CALCIUM
     Dosage: 80 MG, DAILY
  7. AMIODARONE HCL [Interacting]
     Active Substance: AMIODARONE HYDROCHLORIDE
     Dosage: 200 MG, 1X/DAY (200 MG ONCE DAILY FOR 4 MONTHS)
  8. ROSUVASTATIN. [Interacting]
     Active Substance: ROSUVASTATIN
     Dosage: 40 MG, DAILY
  9. TORSEMIDE. [Interacting]
     Active Substance: TORSEMIDE
     Dosage: 20 MG, 1X/DAY (20 MG ONCE DAILY)
  10. SIMVASTATIN. [Concomitant]
     Active Substance: SIMVASTATIN
     Dosage: UNK

REACTIONS (2)
  - Rhabdomyolysis [Unknown]
  - Drug interaction [Unknown]
